FAERS Safety Report 5074550-1 (Version None)
Quarter: 2006Q3

REPORT INFORMATION
  Report Type: 
  Country: None (occurrence: None)
  Receive Date: 20060803
  Receipt Date: 20060721
  Transmission Date: 20061208
  Serious: Yes (Life-Threatening, Other)
  Sender: FDA-Public Use
  Company Number: 2006090752

PATIENT
  Sex: Male
  Weight: 112.0385 kg

DRUGS (2)
  1. GEODON [Suspect]
     Indication: POST-TRAUMATIC STRESS DISORDER
     Dosage: 120 MG (60 MG, 2 IN 1 D), UNKNOWN
     Route: 065
  2. PRAZOSIN GITS [Concomitant]

REACTIONS (3)
  - DYSPNOEA [None]
  - RASH PRURITIC [None]
  - WHEEZING [None]
